FAERS Safety Report 21101721 (Version 5)
Quarter: 2022Q3

REPORT INFORMATION
  Report Type: Report from Study
  Country: KR (occurrence: KR)
  Receive Date: 20220719
  Receipt Date: 20220825
  Transmission Date: 20221026
  Serious: Yes (Other)
  Sender: FDA-Public Use
  Company Number: KR-TAKEDA-2022TUS048093

PATIENT
  Sex: Female
  Weight: 61 kg

DRUGS (11)
  1. IXAZOMIB [Suspect]
     Active Substance: IXAZOMIB
     Indication: Plasma cell myeloma
     Dosage: 4 MILLIGRAM
     Route: 065
     Dates: start: 20211206
  2. DEXAMETHASONE [Suspect]
     Active Substance: DEXAMETHASONE
     Indication: Plasma cell myeloma
     Dosage: 20 MILLIGRAM
     Route: 065
     Dates: start: 20211206
  3. LENALIDOMIDE [Suspect]
     Active Substance: LENALIDOMIDE
     Indication: Plasma cell myeloma
     Dosage: 25 MILLIGRAM, QD
     Route: 065
     Dates: start: 20211206
  4. ZOLEDRONIC ACID [Suspect]
     Active Substance: ZOLEDRONIC ACID
     Indication: Plasma cell myeloma
     Dosage: 4 MILLIGRAM
     Route: 042
     Dates: start: 20211206
  5. ASPIRIN [Concomitant]
     Active Substance: ASPIRIN
     Indication: Prophylaxis
     Dosage: 100 MILLIGRAM
     Route: 048
     Dates: start: 20211206
  6. Vacrax [Concomitant]
     Indication: Infection prophylaxis
     Dosage: 400 MILLIGRAM
     Route: 048
     Dates: start: 20211206
  7. Mypol [Concomitant]
     Indication: Pain prophylaxis
     Dosage: UNK
     Route: 048
     Dates: end: 20220224
  8. Vitaferol [Concomitant]
     Indication: Prophylaxis
     Dosage: UNK
     Route: 048
  9. POTALAC [Concomitant]
     Indication: Constipation prophylaxis
     Dosage: 20 GRAM
     Route: 048
     Dates: start: 20211231, end: 20220224
  10. LEVOFLOXACIN [Concomitant]
     Active Substance: LEVOFLOXACIN
     Indication: Infection prophylaxis
     Dosage: 500 MILLIGRAM
     Route: 048
     Dates: start: 20211206, end: 20220102
  11. MAGNESIUM HYDROXIDE [Concomitant]
     Active Substance: MAGNESIUM HYDROXIDE
     Indication: Constipation prophylaxis
     Dosage: 500 MILLIGRAM
     Route: 048
     Dates: start: 20211206, end: 20220102

REACTIONS (1)
  - Cushing^s syndrome [Not Recovered/Not Resolved]

NARRATIVE: CASE EVENT DATE: 20220128
